FAERS Safety Report 9929648 (Version 4)
Quarter: 2014Q2

REPORT INFORMATION
  Report Type: Report from Study
  Country: CA (occurrence: CA)
  Receive Date: 20140227
  Receipt Date: 20140528
  Transmission Date: 20141212
  Serious: Yes (Death, Hospitalization)
  Sender: FDA-Public Use
  Company Number: CA-INCYTE CORPORATION-2013IN001134

PATIENT
  Age: 78 Year
  Sex: Female

DRUGS (9)
  1. JAKAVI [Suspect]
     Indication: MYELOFIBROSIS
     Dosage: 15 MG, BID
     Route: 048
     Dates: start: 20130528
  2. JAKAVI [Suspect]
     Dosage: 10 MG, BID
     Route: 048
  3. JAKAVI [Suspect]
     Dosage: 5 MG, BID
     Route: 048
  4. JAKAVI [Suspect]
     Dosage: 10 MG, BID
     Route: 048
  5. SYNTHROID [Concomitant]
     Dosage: UNK
  6. FUROSEMIDE [Concomitant]
     Dosage: UNK
  7. PREVACID [Concomitant]
     Dosage: UNK
  8. VALSARTAN [Concomitant]
     Dosage: UNK
  9. VITAMIN D3 [Concomitant]
     Indication: MYELOFIBROSIS

REACTIONS (16)
  - Death [Fatal]
  - Infection [Recovering/Resolving]
  - Oedema peripheral [Unknown]
  - Erythema [Unknown]
  - Diarrhoea [Unknown]
  - Amnesia [Unknown]
  - Hypoaesthesia [Unknown]
  - Musculoskeletal discomfort [Unknown]
  - Memory impairment [Unknown]
  - Pain [Unknown]
  - Faeces discoloured [Unknown]
  - Hypophagia [Recovering/Resolving]
  - Hypersomnia [Recovering/Resolving]
  - Contusion [Unknown]
  - Dizziness [Unknown]
  - Platelet count decreased [Unknown]
